FAERS Safety Report 13061691 (Version 1)
Quarter: 2016Q4

REPORT INFORMATION
  Report Type: Spontaneous
  Country: US (occurrence: US)
  Receive Date: 20161226
  Receipt Date: 20161226
  Transmission Date: 20170207
  Serious: No
  Sender: FDA-Public Use
  Company Number: US-NOVEN PHARMACEUTICALS, INC.-US2016000308

PATIENT

DRUGS (5)
  1. MINIVELLE [Suspect]
     Active Substance: ESTRADIOL
     Indication: NIGHT SWEATS
     Dosage: 0.05 MG, UNK
     Route: 062
     Dates: start: 20160224, end: 2016
  2. MINIVELLE [Suspect]
     Active Substance: ESTRADIOL
     Indication: HOT FLUSH
     Dosage: 0.0375 MG, UNKNOWN
     Route: 062
     Dates: start: 20160214, end: 20160223
  3. MINIVELLE [Suspect]
     Active Substance: ESTRADIOL
     Indication: PANIC ATTACK
     Dosage: 0.025 MG, UNKNOWN
     Route: 062
     Dates: start: 2016
  4. MINIVELLE [Suspect]
     Active Substance: ESTRADIOL
     Indication: OSTEOPOROSIS
  5. MINIVELLE [Suspect]
     Active Substance: ESTRADIOL
     Indication: ANXIETY

REACTIONS (9)
  - Fatigue [Unknown]
  - Hot flush [Not Recovered/Not Resolved]
  - Off label use [Not Recovered/Not Resolved]
  - Panic attack [Unknown]
  - Drug effect increased [Unknown]
  - Headache [Unknown]
  - Malaise [Unknown]
  - Insomnia [Unknown]
  - Night sweats [Not Recovered/Not Resolved]

NARRATIVE: CASE EVENT DATE: 2016
